FAERS Safety Report 12110801 (Version 1)
Quarter: 2016Q1

REPORT INFORMATION
  Report Type: Spontaneous
  Country: US (occurrence: US)
  Receive Date: 20160224
  Receipt Date: 20160224
  Transmission Date: 20160526
  Serious: No
  Sender: FDA-Public Use
  Company Number: US-JAZZ-2015-US-004543

PATIENT
  Sex: Male

DRUGS (2)
  1. PRIALT [Suspect]
     Active Substance: ZICONOTIDE ACETATE
     Indication: LUMBAR RADICULOPATHY
  2. PRIALT [Suspect]
     Active Substance: ZICONOTIDE ACETATE
     Indication: POST LAMINECTOMY SYNDROME
     Dosage: 0.099 ?G, QH
     Route: 037

REACTIONS (4)
  - Confusional state [Unknown]
  - Hallucination, auditory [Unknown]
  - Delusion [Unknown]
  - Gait disturbance [Unknown]
